FAERS Safety Report 6076980-8 (Version None)
Quarter: 2009Q1

REPORT INFORMATION
  Report Type: 
  Country: None (occurrence: None)
  Receive Date: 20090211
  Receipt Date: 20090211
  Transmission Date: 20090719
  Serious: Yes (Hospitalization)
  Sender: FDA-Public Use
  Company Number: None

PATIENT
  Sex: Female
  Weight: 38.1 kg

DRUGS (2)
  1. FLUOROURACIL [Suspect]
     Dosage: 2635 MG
  2. LEUCOVORIN CALCIUM [Suspect]
     Dosage: 125 MG

REACTIONS (11)
  - ABDOMINAL PAIN [None]
  - FEBRILE NEUTROPENIA [None]
  - HYPERGLYCAEMIA [None]
  - HYPOPHAGIA [None]
  - NEUTROPHIL COUNT DECREASED [None]
  - NO THERAPEUTIC RESPONSE [None]
  - PLATELET COUNT DECREASED [None]
  - PLEURAL EFFUSION [None]
  - RESPIRATORY DISTRESS [None]
  - TACHYCARDIA [None]
  - WHITE BLOOD CELL COUNT DECREASED [None]
